FAERS Safety Report 8132061-0 (Version None)
Quarter: 2012Q1

REPORT INFORMATION
  Report Type: 
  Country: None (occurrence: None)
  Receive Date: 20120103
  Receipt Date: 20111101
  Transmission Date: 20120608
  Serious: No
  Sender: FDA-Public Use
  Company Number: AE-2011-001716

PATIENT
  Age: 54 Year
  Sex: Female
  Weight: 68.4932 kg

DRUGS (3)
  1. RIBAVIRIN [Concomitant]
  2. INCIVEK [Suspect]
     Dosage: (750 MG)
     Dates: start: 20110803, end: 20110901
  3. PEGASYS [Concomitant]

REACTIONS (3)
  - PRURITUS [None]
  - ANAEMIA [None]
  - DERMATITIS [None]
